FAERS Safety Report 11882287 (Version 3)
Quarter: 2016Q1

REPORT INFORMATION
  Report Type: Report from Study
  Country: US (occurrence: US)
  Receive Date: 20151231
  Receipt Date: 20160222
  Transmission Date: 20160526
  Serious: Yes (Hospitalization)
  Sender: FDA-Public Use
  Company Number: US-JNJFOC-20151223161

PATIENT
  Age: 65 Year
  Sex: Male

DRUGS (11)
  1. CARBIDOPA-LEVODOPA-B [Concomitant]
     Active Substance: CARBIDOPA\LEVODOPA
  2. TRIHEXYPHENIDYL [Concomitant]
     Active Substance: TRIHEXYPHENIDYL
  3. IMBRUVICA [Suspect]
     Active Substance: IBRUTINIB
     Indication: CHRONIC LYMPHOCYTIC LEUKAEMIA
     Route: 048
     Dates: start: 20160214
  4. DILANTIN [Concomitant]
     Active Substance: PHENYTOIN
  5. KEPPRA [Concomitant]
     Active Substance: LEVETIRACETAM
  6. PROTONIX [Concomitant]
     Active Substance: PANTOPRAZOLE SODIUM
  7. IMBRUVICA [Suspect]
     Active Substance: IBRUTINIB
     Indication: CHRONIC LYMPHOCYTIC LEUKAEMIA
     Route: 048
     Dates: start: 20151016
  8. IMBRUVICA [Suspect]
     Active Substance: IBRUTINIB
     Indication: CHRONIC LYMPHOCYTIC LEUKAEMIA
     Route: 048
     Dates: end: 20160209
  9. TAMSULOSIN HYDROCHLORIDE. [Concomitant]
     Active Substance: TAMSULOSIN HYDROCHLORIDE
  10. GABAPENTIN. [Concomitant]
     Active Substance: GABAPENTIN
  11. ZOCOR [Concomitant]
     Active Substance: SIMVASTATIN

REACTIONS (2)
  - Seizure [Unknown]
  - Drug level decreased [Unknown]

NARRATIVE: CASE EVENT DATE: 2015
